FAERS Safety Report 6283281-1 (Version None)
Quarter: 2009Q3

REPORT INFORMATION
  Report Type: 
  Country: None (occurrence: None)
  Receive Date: 20090724
  Receipt Date: 20090629
  Transmission Date: 20100115
  Serious: Yes (Hospitalization)
  Sender: FDA-Public Use
  Company Number: US-JNJFOC-20090706854

PATIENT
  Age: 33 Year
  Sex: Male

DRUGS (2)
  1. ACETAMINOPHEN [Suspect]
     Dosage: 1000 -2000 MG EVERY 1-2 HOURS FOR 1 DAY
  2. ACETAMINOPHEN [Suspect]
     Indication: TOOTHACHE
     Dosage: 500-1000 MG EVERY 1-2 HOURS FOR 2 DAYS

REACTIONS (4)
  - ACCIDENTAL OVERDOSE [None]
  - MALAISE [None]
  - NAUSEA [None]
  - PAIN [None]
